FAERS Safety Report 7006946-2 (Version None)
Quarter: 2010Q3

REPORT INFORMATION
  Report Type: 
  Country: None (occurrence: None)
  Receive Date: 20100922
  Receipt Date: 20100914
  Transmission Date: 20110219
  Serious: Yes (Other)
  Sender: FDA-Public Use
  Company Number: DE-JNJFOC-20100904721

PATIENT
  Age: 35 Year
  Sex: Female

DRUGS (2)
  1. TAVANIC [Suspect]
     Indication: SINUSITIS
     Route: 048
  2. FERRO SANOL [Interacting]
     Indication: IRON DEFICIENCY
     Route: 048

REACTIONS (3)
  - CARDIOVASCULAR DISORDER [None]
  - DRUG INTERACTION [None]
  - LOSS OF CONSCIOUSNESS [None]
